FAERS Safety Report 19684243 (Version 1)
Quarter: 2021Q3

REPORT INFORMATION
  Report Type: Spontaneous
  Country: US (occurrence: US)
  Receive Date: 20210810
  Receipt Date: 20210810
  Transmission Date: 20211014
  Serious: Yes (Life-Threatening, Hospitalization, Disabling, Other)
  Sender: FDA-Public Use
  Company Number: None

PATIENT
  Age: 8 Year
  Sex: Male
  Weight: 23.7 kg

DRUGS (5)
  1. ANAVIP [Suspect]
     Active Substance: PIT VIPER (CROTALINAE) IMMUNE GLOBULIN ANTIVENIN (EQUINE)
     Route: 042
     Dates: start: 20201022, end: 20201023
  2. OXYCODONE 1MG [Concomitant]
     Dates: start: 20201022, end: 20201022
  3. D5 NS + POTASSIUM CHLORIDE 20 MEQ [Concomitant]
     Dates: start: 20201022, end: 20201023
  4. ACETAMINOPHEN 325MG [Concomitant]
     Dates: start: 20201022, end: 20201023
  5. MORPHINE 1MG [Concomitant]
     Dates: start: 20201022, end: 20201022

REACTIONS (4)
  - Coagulopathy [None]
  - Peripheral swelling [None]
  - Prothrombin time prolonged [None]
  - Blood fibrinogen decreased [None]

NARRATIVE: CASE EVENT DATE: 20201022
